FAERS Safety Report 5151741-2 (Version None)
Quarter: 2006Q4

REPORT INFORMATION
  Report Type: 
  Country: None (occurrence: None)
  Receive Date: 20061107
  Receipt Date: 20061017
  Transmission Date: 20070319
  Serious: Yes (Hospitalization)
  Sender: FDA-Public Use
  Company Number: FR200512002461

PATIENT
  Age: 60 Year
  Sex: Female

DRUGS (7)
  1. EVISTA [Suspect]
     Dosage: 60 MG DAILY (1/D) ORAL
     Route: 048
     Dates: start: 20030101, end: 20051115
  2. ZOCOR [Concomitant]
  3. ART 50 (DIACEREIN) CAPSULE [Concomitant]
  4. ASPEGIC 1000 [Concomitant]
  5. IBUPROFEN [Concomitant]
  6. HARPAGESIC (HARPAGOPHYTUM PROCUMBENS) [Concomitant]
  7. SERETIDE (FLUTICASONE PROPIONATE, SALMETEROL) [Concomitant]

REACTIONS (8)
  - ALANINE AMINOTRANSFERASE INCREASED [None]
  - ASPARTATE AMINOTRANSFERASE INCREASED [None]
  - AUTOIMMUNE HEPATITIS [None]
  - BILIRUBIN CONJUGATED INCREASED [None]
  - BLOOD ALKALINE PHOSPHATASE INCREASED [None]
  - BLOOD BILIRUBIN INCREASED [None]
  - BLOOD COPPER INCREASED [None]
  - CHOLANGITIS [None]
